FAERS Safety Report 10691316 (Version 1)
Quarter: 2015Q1

REPORT INFORMATION
  Report Type: Spontaneous
  Country: DE (occurrence: DE)
  Receive Date: 20150105
  Receipt Date: 20150105
  Transmission Date: 20150720
  Serious: Yes (Hospitalization)
  Sender: FDA-Public Use
  Company Number: DE-BANPHARM-20143325

PATIENT
  Age: 84 Year
  Sex: Male

DRUGS (16)
  1. RISPERDAL [Suspect]
     Active Substance: RISPERIDONE
     Dosage: 0.5 MG, QD,
     Dates: start: 20120803
  2. ASPIRIN. [Concomitant]
     Active Substance: ASPIRIN
  3. RISPERDAL [Suspect]
     Active Substance: RISPERIDONE
     Dosage: 1.5 MG, QD,
     Dates: start: 20120723, end: 20120801
  4. SIMVAGAMMA [Concomitant]
  5. FUROSEMIDE. [Interacting]
     Active Substance: FUROSEMIDE
     Dates: start: 201206, end: 20120721
  6. CLEXANE [Concomitant]
     Active Substance: ENOXAPARIN SODIUM
     Dosage: 0.4 ML,
     Dates: start: 20120723
  7. ACTRAPID [Concomitant]
     Active Substance: INSULIN HUMAN
     Dosage: 24 IU,
     Dates: start: 20120703, end: 20120731
  8. PANTOZOL [Concomitant]
     Active Substance: PANTOPRAZOLE SODIUM
  9. VALSARTAN. [Concomitant]
     Active Substance: VALSARTAN
  10. RISPERDAL [Suspect]
     Active Substance: RISPERIDONE
     Dosage: 0.5 MG, BID,
     Dates: start: 20120720, end: 20120722
  11. RISPERDAL [Suspect]
     Active Substance: RISPERIDONE
     Dosage: 1 MG, QD,
     Dates: start: 20120802
  12. TORASEMID [Interacting]
     Active Substance: TORSEMIDE
     Dates: start: 20120722
  13. IBUPROFEN UNKNOWN PRODUCT [Interacting]
     Active Substance: IBUPROFEN
  14. PLASTULEN N [Concomitant]
     Active Substance: FERROUS SULFATE\FOLIC ACID
     Dosage: 2 DF, QD,
     Route: 048
     Dates: start: 20120608, end: 20120731
  15. MELPERONE [Concomitant]
     Active Substance: MELPERONE
  16. QUETIAPIN [Concomitant]
     Active Substance: QUETIAPINE
     Dosage: 75 MG,

REACTIONS (2)
  - Thrombocytopenia [Recovered/Resolved]
  - Drug interaction [None]

NARRATIVE: CASE EVENT DATE: 20120731
